FAERS Safety Report 6104017-0 (Version None)
Quarter: 2009Q1

REPORT INFORMATION
  Report Type: 
  Country: None (occurrence: None)
  Receive Date: 20090305
  Receipt Date: 20090302
  Transmission Date: 20090719
  Serious: Yes (Other)
  Sender: FDA-Public Use
  Company Number: ES-BRISTOL-MYERS SQUIBB COMPANY-14525471

PATIENT
  Age: 40 Year
  Sex: Female

DRUGS (3)
  1. EFAVIRENZ [Suspect]
     Indication: HIV INFECTION
     Dates: start: 20030304, end: 20040121
  2. DIDANOSINE [Suspect]
     Indication: HIV INFECTION
     Dates: start: 20030304, end: 20040121
  3. STAVUDINE [Suspect]
     Indication: HIV INFECTION
     Dates: start: 20030304, end: 20040121

REACTIONS (3)
  - DRUG RESISTANCE [None]
  - IMMUNE RECONSTITUTION SYNDROME [None]
  - PROGRESSIVE MULTIFOCAL LEUKOENCEPHALOPATHY [None]
